FAERS Safety Report 10673124 (Version 2)
Quarter: 2015Q1

REPORT INFORMATION
  Report Type: Report from Study
  Country: US (occurrence: US)
  Receive Date: 20141224
  Receipt Date: 20150205
  Transmission Date: 20150720
  Serious: Yes (Other)
  Sender: FDA-Public Use
  Company Number: US-AMGEN-USASL2014098690

PATIENT
  Age: 62 Year
  Sex: Female

DRUGS (2)
  1. CYMBALTA [Concomitant]
     Active Substance: DULOXETINE HYDROCHLORIDE
     Dosage: UNK
  2. ENBREL [Suspect]
     Active Substance: ETANERCEPT
     Indication: PRODUCT USED FOR UNKNOWN INDICATION
     Dosage: UNK
     Route: 065

REACTIONS (7)
  - Hypertension [Unknown]
  - Rheumatoid arthritis [Unknown]
  - Erythema [Unknown]
  - Swelling [Unknown]
  - Feeling hot [Unknown]
  - Hypersensitivity [Recovered/Resolved]
  - Inflammation [Unknown]
